FAERS Safety Report 18712665 (Version 1)
Quarter: 2021Q1

REPORT INFORMATION
  Report Type: Spontaneous
  Country: US (occurrence: US)
  Receive Date: 20210107
  Receipt Date: 20210107
  Transmission Date: 20210419
  Serious: No
  Sender: FDA-Public Use
  Company Number: US-PFIZER INC-2021003171

PATIENT
  Age: 55 Year
  Sex: Female
  Weight: 98.43 kg

DRUGS (2)
  1. IBRANCE [Suspect]
     Active Substance: PALBOCICLIB
     Indication: BREAST CANCER METASTATIC
     Dosage: 75 MG, CYCLIC (75MG BY MOUTH FOR 21 DAYS ON AND 7 DAYS OFF)
     Route: 048
     Dates: start: 202011
  2. LETROZOLE. [Concomitant]
     Active Substance: LETROZOLE
     Indication: BREAST CANCER METASTATIC
     Dosage: 2.5 MG, DAILY
     Dates: start: 201802

REACTIONS (8)
  - Weight increased [Not Recovered/Not Resolved]
  - Dyspepsia [Not Recovered/Not Resolved]
  - Breast pain [Not Recovered/Not Resolved]
  - Gastrooesophageal reflux disease [Not Recovered/Not Resolved]
  - Skin exfoliation [Not Recovered/Not Resolved]
  - Nail disorder [Not Recovered/Not Resolved]
  - Wheezing [Not Recovered/Not Resolved]
  - Breast discomfort [Not Recovered/Not Resolved]

NARRATIVE: CASE EVENT DATE: 202011
